FAERS Safety Report 22237887 (Version 3)
Quarter: 2023Q2

REPORT INFORMATION
  Report Type: Report from Study
  Country: US (occurrence: None)
  Receive Date: 20230421
  Receipt Date: 20230607
  Transmission Date: 20230721
  Serious: Yes (Hospitalization, Other)
  Sender: FDA-Public Use
  Company Number: US-Merck Healthcare KGaA-9356497

PATIENT
  Age: 64 Year
  Sex: Female

DRUGS (1)
  1. REBIF [Suspect]
     Active Substance: INTERFERON BETA-1A
     Indication: Multiple sclerosis
     Dosage: PREFILLED SYRINGE
     Route: 058
     Dates: start: 20070706

REACTIONS (10)
  - Knee arthroplasty [Unknown]
  - Femur fracture [Unknown]
  - Musculoskeletal procedural complication [Unknown]
  - Fall [Unknown]
  - Peroneal nerve palsy [Unknown]
  - Foot fracture [Unknown]
  - Gait inability [Unknown]
  - Pain [Unknown]
  - Swelling [Unknown]
  - Impaired healing [Unknown]

NARRATIVE: CASE EVENT DATE: 20221201
